FAERS Safety Report 8186611-9 (Version None)
Quarter: 2012Q1

REPORT INFORMATION
  Report Type: 
  Country: None (occurrence: None)
  Receive Date: 20120306
  Receipt Date: 20120224
  Transmission Date: 20120608
  Serious: Yes (Hospitalization, Other)
  Sender: FDA-Public Use
  Company Number: US-BAYER-2011-022311

PATIENT
  Age: 16 Year
  Sex: Female
  Weight: 54 kg

DRUGS (3)
  1. CIPROFLOXACIN [Concomitant]
     Dosage: UNK
     Dates: start: 20080517, end: 20080518
  2. YAZ [Suspect]
     Indication: CONTRACEPTION
     Dosage: UNK
     Route: 048
     Dates: start: 20071001, end: 20080901
  3. YAZ [Suspect]
     Dosage: UNK
     Route: 048
     Dates: start: 20081201, end: 20081201

REACTIONS (9)
  - DEPRESSION [None]
  - DYSPEPSIA [None]
  - DIARRHOEA [None]
  - BILIARY DYSKINESIA [None]
  - FLATULENCE [None]
  - CONSTIPATION [None]
  - ABDOMINAL DISTENSION [None]
  - SCAR [None]
  - ANXIETY [None]
